FAERS Safety Report 12130286 (Version 1)
Quarter: 2016Q1

REPORT INFORMATION
  Report Type: Report from Study
  Country: SG (occurrence: SG)
  Receive Date: 20160301
  Receipt Date: 20160301
  Transmission Date: 20160526
  Serious: Yes (Hospitalization)
  Sender: FDA-Public Use
  Company Number: SG-ROCHE-1494696

PATIENT
  Age: 45 Year
  Sex: Female
  Weight: 63 kg

DRUGS (79)
  1. STILNOX CR [Concomitant]
     Active Substance: ZOLPIDEM TARTRATE
     Route: 065
     Dates: start: 20141028, end: 20141028
  2. GENTEAL MILD [Concomitant]
     Active Substance: HYPROMELLOSE 2910 (4000 MPA.S)
     Route: 065
     Dates: start: 20141023, end: 20141123
  3. CIPROFLOXACIN. [Concomitant]
     Active Substance: CIPROFLOXACIN
     Indication: ABDOMINAL SEPSIS
     Route: 065
     Dates: start: 20141120, end: 20141120
  4. METRONIDAZOLE. [Concomitant]
     Active Substance: METRONIDAZOLE
     Indication: INFECTION PROPHYLAXIS
     Route: 065
     Dates: start: 20141028, end: 20141028
  5. HYDROCORTISONE. [Concomitant]
     Active Substance: HYDROCORTISONE
     Route: 065
     Dates: start: 20141120, end: 20141125
  6. HYDROCORTISONE. [Concomitant]
     Active Substance: HYDROCORTISONE
     Route: 065
     Dates: start: 20141201, end: 20141205
  7. HYDROCORTISONE. [Concomitant]
     Active Substance: HYDROCORTISONE
     Route: 042
     Dates: start: 20141205, end: 20141212
  8. NYSTATIN. [Concomitant]
     Active Substance: NYSTATIN
     Indication: ORAL CANDIDIASIS
     Route: 065
     Dates: start: 20141120, end: 20141225
  9. ALPRAZOLAM. [Concomitant]
     Active Substance: ALPRAZOLAM
     Route: 065
     Dates: start: 20141121, end: 20141225
  10. NEXIUM [Concomitant]
     Active Substance: ESOMEPRAZOLE MAGNESIUM
     Route: 065
     Dates: start: 20141125, end: 20141225
  11. MORPHINE SULFATE. [Concomitant]
     Active Substance: MORPHINE SULFATE
     Indication: PAIN
     Route: 065
     Dates: start: 20141127, end: 20141201
  12. POTASSIUM DIHYDROGEN PHOSPHATE [Concomitant]
     Indication: HYPOPHOSPHATAEMIA
     Route: 065
     Dates: start: 20141128, end: 20141128
  13. DEXTROMETHORPHAN [Concomitant]
     Active Substance: DEXTROMETHORPHAN
     Indication: COUGH
     Route: 065
     Dates: start: 20141129, end: 20141129
  14. MAGNESIUM SULFATE. [Concomitant]
     Active Substance: MAGNESIUM SULFATE
     Dosage: 10 UNIT:OTHER
     Route: 065
     Dates: start: 20141208, end: 20141208
  15. ZOMETA [Concomitant]
     Active Substance: ZOLEDRONIC ACID
     Route: 042
     Dates: start: 20141224, end: 20141224
  16. DOPAMINE HCL [Concomitant]
     Active Substance: DOPAMINE HYDROCHLORIDE
     Indication: HYPOTENSION
     Route: 042
     Dates: start: 20141224, end: 20141224
  17. FENTANYL. [Concomitant]
     Active Substance: FENTANYL
     Dosage: FORM STRENGTH: 12MICROG/HR?DOSE: 1 OTHER
     Route: 065
     Dates: start: 20141122, end: 20141224
  18. GABAPENTIN. [Concomitant]
     Active Substance: GABAPENTIN
     Indication: NEUROPATHY PERIPHERAL
     Route: 065
  19. CIPROFLOXACIN. [Concomitant]
     Active Substance: CIPROFLOXACIN
     Route: 042
     Dates: start: 20141212
  20. LEVOTHYROXINE. [Concomitant]
     Active Substance: LEVOTHYROXINE
     Route: 065
     Dates: start: 20141120, end: 20141225
  21. HYDROCORTISONE. [Concomitant]
     Active Substance: HYDROCORTISONE
     Route: 065
     Dates: start: 20141125, end: 20141125
  22. HYDROCORTISONE. [Concomitant]
     Active Substance: HYDROCORTISONE
     Route: 065
     Dates: start: 20141126, end: 20141127
  23. FLUIMUCIL [Concomitant]
     Active Substance: ACETYLCYSTEINE
     Route: 065
     Dates: start: 20141203, end: 20141205
  24. MORPHINE SULFATE. [Concomitant]
     Active Substance: MORPHINE SULFATE
     Route: 058
     Dates: start: 20141224, end: 20141225
  25. POTASSIUM DIHYDROGEN PHOSPHATE [Concomitant]
     Dosage: 10 UNIT:OTHER
     Route: 065
     Dates: start: 20141208, end: 20141208
  26. ALBUMIN [Concomitant]
     Active Substance: ALBUMIN (HUMAN)
     Indication: HYPOTENSION
     Route: 042
     Dates: start: 20141130, end: 20141130
  27. ATEZOLIZUMAB [Suspect]
     Active Substance: ATEZOLIZUMAB
     Indication: NASOPHARYNGEAL CANCER
     Dosage: LAST DOSE PRIOR TO PERICARDIAL EFFUSION: 11/NOV/2014 AT 16:44
     Route: 042
     Dates: start: 20141111
  28. FAMOTIDINE. [Concomitant]
     Active Substance: FAMOTIDINE
     Indication: PROPHYLAXIS
     Route: 065
     Dates: start: 20141028, end: 20141028
  29. FAMOTIDINE. [Concomitant]
     Active Substance: FAMOTIDINE
     Route: 065
     Dates: start: 20141121, end: 20141125
  30. HYDROCORTISONE. [Concomitant]
     Active Substance: HYDROCORTISONE
     Route: 065
     Dates: start: 20141127, end: 20141201
  31. HYDROCORTISONE. [Concomitant]
     Active Substance: HYDROCORTISONE
     Route: 042
     Dates: start: 20141212, end: 20141216
  32. FLUIMUCIL [Concomitant]
     Active Substance: ACETYLCYSTEINE
     Route: 065
     Dates: start: 20141120, end: 20141125
  33. KONAKION [Concomitant]
     Active Substance: PHYTONADIONE
     Route: 042
     Dates: start: 20141120, end: 20141120
  34. PETHIDINE HCL [Concomitant]
     Indication: PAIN
     Route: 065
     Dates: start: 20141205, end: 20141205
  35. ATEZOLIZUMAB [Suspect]
     Active Substance: ATEZOLIZUMAB
     Dosage: C2D1
     Route: 042
     Dates: start: 20141201
  36. STILNOX CR [Concomitant]
     Active Substance: ZOLPIDEM TARTRATE
     Indication: INSOMNIA
     Route: 065
  37. FAMOTIDINE. [Concomitant]
     Active Substance: FAMOTIDINE
     Route: 065
     Dates: start: 20141108, end: 20141114
  38. LEVOTHYROXINE. [Concomitant]
     Active Substance: LEVOTHYROXINE
     Indication: HYPOPITUITARISM
     Route: 065
     Dates: start: 20141028, end: 20141028
  39. BACTRIM [Concomitant]
     Active Substance: SULFAMETHOXAZOLE\TRIMETHOPRIM
     Indication: INFECTION PROPHYLAXIS
     Dosage: FORM STRENGTH: 400/80MG
     Route: 065
     Dates: start: 20141028, end: 20141028
  40. BACTRIM [Concomitant]
     Active Substance: SULFAMETHOXAZOLE\TRIMETHOPRIM
     Route: 065
     Dates: start: 20141120, end: 20141120
  41. PROCODIN [Concomitant]
     Route: 065
     Dates: start: 20141120, end: 20141129
  42. PROCODIN [Concomitant]
     Route: 065
     Dates: start: 20141129, end: 20141224
  43. MEROPENEM. [Concomitant]
     Active Substance: MEROPENEM
     Indication: INFECTION
     Route: 042
     Dates: start: 20141124, end: 20141202
  44. COBIMETINIB [Suspect]
     Active Substance: COBIMETINIB
     Indication: NASOPHARYNGEAL CANCER
     Dosage: FORM OF ADMINISTRATION AS PER PROTOCOL?LAST DOSE PRIOR TO PERICARDIAL EFFUSION: 18/NOV/2014
     Route: 048
     Dates: start: 20141028
  45. FENTANYL. [Concomitant]
     Active Substance: FENTANYL
     Indication: COUGH
     Dosage: FORM STRENGTH: 12MICROG/HR?DOSE: 1 OTHER
     Route: 065
     Dates: start: 20141111, end: 20141211
  46. CIPROFLOXACIN. [Concomitant]
     Active Substance: CIPROFLOXACIN
     Indication: INFECTION PROPHYLAXIS
     Route: 065
     Dates: start: 20141028, end: 20141028
  47. CIPROFLOXACIN. [Concomitant]
     Active Substance: CIPROFLOXACIN
     Route: 065
     Dates: start: 20141120, end: 20141124
  48. HYDROCORTISONE. [Concomitant]
     Active Substance: HYDROCORTISONE
     Indication: HYPOPITUITARISM
     Route: 065
     Dates: start: 20141028, end: 20141028
  49. METOPROLOL TARTRATE. [Concomitant]
     Active Substance: METOPROLOL TARTRATE
     Indication: SINUS TACHYCARDIA
     Route: 065
     Dates: start: 20141125, end: 20141224
  50. ADENOSINE. [Concomitant]
     Active Substance: ADENOSINE
     Indication: SINUS TACHYCARDIA
     Route: 065
     Dates: start: 20141125, end: 20141125
  51. MORPHINE SULFATE. [Concomitant]
     Active Substance: MORPHINE SULFATE
     Indication: DYSPNOEA
     Route: 065
     Dates: start: 20141201, end: 20141224
  52. FERROUS FUMARATE [Concomitant]
     Active Substance: FERROUS FUMARATE
     Route: 065
     Dates: start: 20141120, end: 20141224
  53. HYDROCORTISONE. [Concomitant]
     Active Substance: HYDROCORTISONE
     Route: 065
     Dates: start: 20141120, end: 20141120
  54. HYDROCORTISONE. [Concomitant]
     Active Substance: HYDROCORTISONE
     Route: 065
     Dates: start: 20141120, end: 20141125
  55. MAGNESIUM SULFATE. [Concomitant]
     Active Substance: MAGNESIUM SULFATE
     Dosage: 10 :UNIT OTHER
     Route: 042
     Dates: start: 20141210, end: 20141210
  56. FAMOTIDINE. [Concomitant]
     Active Substance: FAMOTIDINE
     Route: 065
     Dates: start: 20141120, end: 20141121
  57. HYDROCORTISONE. [Concomitant]
     Active Substance: HYDROCORTISONE
     Route: 065
     Dates: start: 20141028, end: 20141028
  58. HYDROCORTISONE. [Concomitant]
     Active Substance: HYDROCORTISONE
     Route: 065
     Dates: start: 20141120, end: 20141121
  59. BACTRIM [Concomitant]
     Active Substance: SULFAMETHOXAZOLE\TRIMETHOPRIM
     Route: 065
     Dates: start: 20141120, end: 20141124
  60. PROCODIN [Concomitant]
     Indication: COUGH
     Route: 065
     Dates: start: 20141028, end: 20141028
  61. PREDNISOLONE. [Concomitant]
     Active Substance: PREDNISOLONE
     Indication: HYPOPITUITARISM
     Route: 065
     Dates: start: 20141127, end: 20141127
  62. POTASSIUM DIHYDROGEN PHOSPHATE [Concomitant]
     Route: 065
     Dates: start: 20141201, end: 20141201
  63. ALBUMIN [Concomitant]
     Active Substance: ALBUMIN (HUMAN)
     Indication: OEDEMA PERIPHERAL
     Route: 042
     Dates: start: 20141211, end: 20141211
  64. MAGNESIUM SULFATE. [Concomitant]
     Active Substance: MAGNESIUM SULFATE
     Indication: HYPOMAGNESAEMIA
     Dosage: 10 UNIT:OTHER
     Route: 042
     Dates: start: 20141201, end: 20141201
  65. STILNOX CR [Concomitant]
     Active Substance: ZOLPIDEM TARTRATE
     Route: 065
     Dates: start: 20141120, end: 20141124
  66. REFRESH PLUS [Concomitant]
     Active Substance: CARBOXYMETHYLCELLULOSE SODIUM
     Route: 065
     Dates: start: 20141023
  67. LOPERAMIDE [Concomitant]
     Active Substance: LOPERAMIDE
     Indication: DIARRHOEA
     Route: 065
     Dates: start: 20141108, end: 20141114
  68. LOPERAMIDE [Concomitant]
     Active Substance: LOPERAMIDE
     Route: 065
     Dates: start: 20141121, end: 20141216
  69. CIPROFLOXACIN. [Concomitant]
     Active Substance: CIPROFLOXACIN
     Route: 065
     Dates: start: 20141223, end: 20141224
  70. FERROUS FUMARATE [Concomitant]
     Active Substance: FERROUS FUMARATE
     Indication: SUPPLEMENTATION THERAPY
     Route: 065
     Dates: start: 20141028, end: 20141028
  71. HYDROCORTISONE. [Concomitant]
     Active Substance: HYDROCORTISONE
     Route: 065
     Dates: start: 20141125, end: 20141126
  72. HYDROCORTISONE. [Concomitant]
     Active Substance: HYDROCORTISONE
     Route: 042
     Dates: start: 20141216, end: 20141218
  73. XANAX [Concomitant]
     Active Substance: ALPRAZOLAM
     Indication: INSOMNIA
     Route: 065
  74. BACTRIM [Concomitant]
     Active Substance: SULFAMETHOXAZOLE\TRIMETHOPRIM
     Route: 065
     Dates: start: 20141202, end: 20141225
  75. FLUIMUCIL [Concomitant]
     Active Substance: ACETYLCYSTEINE
     Indication: COUGH
     Route: 065
     Dates: start: 20141028, end: 20141103
  76. KONAKION [Concomitant]
     Active Substance: PHYTONADIONE
     Route: 042
     Dates: start: 20141120, end: 20141123
  77. PROCODIN [Concomitant]
     Indication: COUGH
     Route: 065
     Dates: start: 20141129, end: 20141224
  78. PIPERACILLIN SODIUM/TAZOBACTAM [Concomitant]
     Active Substance: PIPERACILLIN SODIUM\TAZOBACTAM SODIUM
     Indication: ABDOMINAL SEPSIS
     Route: 065
     Dates: start: 20141224, end: 20141225
  79. HARTMANN^S SOLUTION [Concomitant]
     Active Substance: CALCIUM CHLORIDE\POTASSIUM CHLORIDE\SODIUM CHLORIDE\SODIUM LACTATE
     Indication: HYPOTENSION
     Route: 042
     Dates: start: 20141224, end: 20141224

REACTIONS (1)
  - Pericardial effusion [Not Recovered/Not Resolved]

NARRATIVE: CASE EVENT DATE: 20141120
